FAERS Safety Report 24876454 (Version 1)
Quarter: 2025Q1

REPORT INFORMATION
  Report Type: Spontaneous
  Country: US (occurrence: US)
  Receive Date: 20250123
  Receipt Date: 20250123
  Transmission Date: 20250408
  Serious: No
  Sender: ROCHE
  Company Number: US-ROCHE-10000184002

PATIENT
  Age: 61 Year
  Sex: Male

DRUGS (1)
  1. ERIVEDGE [Suspect]
     Active Substance: VISMODEGIB
     Indication: Neuroendocrine carcinoma of the skin
     Route: 048

REACTIONS (3)
  - Irritability [Unknown]
  - Insomnia [Unknown]
  - Emotional distress [Unknown]
